FAERS Safety Report 9759619 (Version 1)
Quarter: 2013Q4

REPORT INFORMATION
  Report Type: Spontaneous
  Country: US (occurrence: US)
  Receive Date: 20131216
  Receipt Date: 20131216
  Transmission Date: 20140711
  Serious: No
  Sender: FDA-Public Use
  Company Number: US-GILEAD-2010-0028293

PATIENT
  Age: 79 Year
  Sex: Female

DRUGS (7)
  1. LETAIRIS [Suspect]
     Indication: PULMONARY ARTERIAL HYPERTENSION
     Route: 048
     Dates: start: 20090926
  2. ALENDRONATE [Concomitant]
  3. METHYLPREDNISOLONE [Concomitant]
  4. ALBUTEROL [Concomitant]
  5. CRESTOR [Concomitant]
  6. WARFARIN [Concomitant]
  7. ROBITUSSIN / CODEINE [Concomitant]

REACTIONS (1)
  - Bronchitis [Recovering/Resolving]
